FAERS Safety Report 6836646-0 (Version None)
Quarter: 2010Q3

REPORT INFORMATION
  Report Type: 
  Country: None (occurrence: None)
  Receive Date: 20100713
  Receipt Date: 20100701
  Transmission Date: 20110219
  Serious: Yes (Other)
  Sender: FDA-Public Use
  Company Number: FR-PFIZER INC-2010009473

PATIENT
  Age: 74 Year
  Sex: Male

DRUGS (9)
  1. XALATAN [Suspect]
     Indication: OCULAR HYPERTENSION
     Dosage: UNK
     Route: 047
     Dates: start: 20071001, end: 20090901
  2. XALATAN [Suspect]
     Indication: GLAUCOMA
     Dosage: UNK
  3. LEVOTHYROXINE SODIUM [Concomitant]
  4. METFORMIN HCL/PIOGLITAZONE HCL [Concomitant]
     Dosage: 15MG/850
  5. NAFTIDROFURYL [Concomitant]
     Dosage: 200 UNK, UNK
  6. ALLOPURINOL [Concomitant]
     Dosage: 200 UNK, UNK
  7. CADUET [Concomitant]
     Dosage: 5/10MG
  8. ALTIZIDE W/SPIRONOLACTONE [Concomitant]
     Dosage: 25/15
  9. METFORMIN [Concomitant]
     Dosage: 50 UNK, UNK

REACTIONS (6)
  - DIABETES MELLITUS [None]
  - DRUG INEFFECTIVE [None]
  - INTRAOCULAR PRESSURE INCREASED [None]
  - IRIDOTOMY [None]
  - VERTIGO [None]
  - VOMITING [None]
